FAERS Safety Report 20797535 (Version 1)
Quarter: 2022Q2

REPORT INFORMATION
  Report Type: Report from Study
  Country: US (occurrence: US)
  Receive Date: 20220506
  Receipt Date: 20220506
  Transmission Date: 20220721
  Serious: Yes (Other)
  Sender: FDA-Public Use
  Company Number: US-JAZZ-2022-US-014545

PATIENT
  Age: 51 Year
  Sex: Female

DRUGS (17)
  1. XYREM [Suspect]
     Active Substance: SODIUM OXYBATE
     Indication: Narcolepsy
     Dosage: 4.5 GRAM, BID
     Route: 048
  2. FISH OIL [Concomitant]
     Active Substance: FISH OIL
     Dosage: SOFTGEL
     Dates: start: 20100201
  3. TRETINOIN [Concomitant]
     Active Substance: TRETINOIN
     Dosage: UNK
     Dates: start: 20100201
  4. AMPICILLIN [Concomitant]
     Active Substance: AMPICILLIN
     Dosage: UNK
     Dates: start: 20100201
  5. CYMBALTA [Concomitant]
     Active Substance: DULOXETINE HYDROCHLORIDE
     Dosage: UNK
     Dates: start: 20120201
  6. ASPIRIN [Concomitant]
     Active Substance: ASPIRIN
     Dosage: UNK
     Dates: start: 20080201
  7. ZOCOR [Concomitant]
     Active Substance: SIMVASTATIN
     Dosage: UNK UNK, QD
     Dates: start: 20151015
  8. NUVIGIL [Concomitant]
     Active Substance: ARMODAFINIL
     Dosage: UNK
     Dates: start: 20151015
  9. ACZONE [Concomitant]
     Active Substance: DAPSONE
     Dosage: UNK
     Dates: start: 20151015
  10. ASPIRIN [Concomitant]
     Active Substance: ASPIRIN
     Dosage: UNK
     Dates: start: 20121107
  11. CEPHALEXIN [Concomitant]
     Active Substance: CEPHALEXIN
     Dosage: UNK
     Dates: start: 20151216
  12. GLUCOPHAGE [Concomitant]
     Active Substance: METFORMIN HYDROCHLORIDE
     Dosage: UNK
     Dates: start: 20151204
  13. SULFACETAMIDE SODIUM [Concomitant]
     Active Substance: SULFACETAMIDE SODIUM
     Dosage: UNK
     Dates: start: 20151104
  14. OXYGEN [Concomitant]
     Active Substance: OXYGEN
     Dosage: UNK
     Dates: start: 20031203
  15. ASCORBIC ACID [Concomitant]
     Active Substance: ASCORBIC ACID
     Dosage: UNK
     Dates: start: 20170308
  16. VITAMIN D3 [Concomitant]
     Active Substance: CHOLECALCIFEROL
     Dosage: UNK
     Dates: start: 20170308
  17. VITAMIN E [Concomitant]
     Active Substance: .ALPHA.-TOCOPHEROL
     Dosage: UNK
     Dates: start: 20170308

REACTIONS (10)
  - Deafness [Unknown]
  - Hydrocephalus [Unknown]
  - Histoplasmosis [Unknown]
  - Dizziness [Unknown]
  - Depression [Unknown]
  - Dyspnoea [Unknown]
  - Tinnitus [Unknown]
  - Hypersomnia [Unknown]
  - Product administration interrupted [Unknown]
  - Blood cholesterol increased [Unknown]

NARRATIVE: CASE EVENT DATE: 20150101
